FAERS Safety Report 4369925-X (Version None)
Quarter: 2004Q2

REPORT INFORMATION
  Report Type: 
  Country: None (occurrence: None)
  Receive Date: 20040527
  Receipt Date: 20040507
  Transmission Date: 20050107
  Serious: Yes (Life-Threatening, Hospitalization)
  Sender: FDA-Public Use
  Company Number: GBS040514890

PATIENT
  Age: 67 Year
  Sex: Female
  Weight: 100 kg

DRUGS (15)
  1. HUMULIN R [Suspect]
     Dosage: 20 U/2 DAY
  2. CRESTOR (ROSUVASTATIN) [Concomitant]
  3. WARFARIN SODIUM [Concomitant]
  4. ACETAMINOPHEN [Concomitant]
  5. NICORANDIL [Concomitant]
  6. LANSOPRAZOLE [Concomitant]
  7. ATENOLOL [Concomitant]
  8. CLOPIDOGREL BISULFATE [Concomitant]
  9. THYROXINE [Concomitant]
  10. ASPIRIN [Concomitant]
  11. ISOSORBIDE [Concomitant]
  12. RAMIPRIL [Concomitant]
  13. METOCLOPRAMIDE [Concomitant]
  14. METOPROLOL TARTRATE [Concomitant]
  15. GAVISCON [Concomitant]

REACTIONS (13)
  - ACUTE CORONARY SYNDROME [None]
  - ANGINA PECTORIS [None]
  - DEEP VEIN THROMBOSIS [None]
  - DIALYSIS [None]
  - MEDICAL DEVICE COMPLICATION [None]
  - MYOCARDIAL INFARCTION [None]
  - PLATELET COUNT DECREASED [None]
  - PROCEDURAL COMPLICATION [None]
  - PROCEDURAL HYPOTENSION [None]
  - RENAL FAILURE ACUTE [None]
  - RHABDOMYOLYSIS [None]
  - STAPHYLOCOCCAL SEPSIS [None]
  - TROPONIN T INCREASED [None]
